FAERS Safety Report 9068431 (Version 2)
Quarter: 2013Q2

REPORT INFORMATION
  Report Type: Report from Study
  Country: BR (occurrence: BR)
  Receive Date: 20130206
  Receipt Date: 20130524
  Transmission Date: 20140414
  Serious: Yes (Death, Hospitalization)
  Sender: FDA-Public Use
  Company Number: BR-ABBOTT-13P-020-1043871-00

PATIENT
  Age: 61 Year
  Sex: Female
  Weight: 105 kg

DRUGS (14)
  1. HUMIRA [Suspect]
     Indication: RHEUMATOID ARTHRITIS
     Route: 058
     Dates: start: 201211
  2. TENORETIC [Concomitant]
     Indication: BLOOD PRESSURE ABNORMAL
     Route: 048
  3. AAS [Concomitant]
     Indication: BLOOD PRESSURE ABNORMAL
     Route: 048
  4. LOSARTAN [Concomitant]
     Indication: BLOOD PRESSURE ABNORMAL
     Route: 048
     Dates: start: 201211
  5. METFORMIN [Concomitant]
     Indication: DIABETES MELLITUS
     Route: 048
     Dates: start: 2010
  6. RANITIDINE [Concomitant]
     Indication: GASTRIC DISORDER
     Route: 048
     Dates: start: 2012
  7. ARTROLIVE [Concomitant]
     Indication: ARTHRITIS
     Route: 048
  8. CELEBRA [Concomitant]
     Indication: PAIN
     Route: 048
     Dates: start: 2011
  9. METICORTEN [Concomitant]
     Indication: RHEUMATIC DISORDER
     Route: 048
     Dates: start: 2006
  10. VITAMIN D SUBSTANCES (ADDERA) [Concomitant]
     Indication: VITAMIN D
     Dosage: IN THE MORNING
     Route: 048
     Dates: start: 2011
  11. ARAVA [Concomitant]
     Indication: RHEUMATIC DISORDER
     Route: 048
     Dates: start: 2006
  12. CALCIUM [Concomitant]
     Indication: BONE DISORDER
     Route: 048
  13. TOCOPHEROL [Concomitant]
     Indication: PRODUCT USED FOR UNKNOWN INDICATION
     Dosage: FORM OF ADMINISTRATION: GELATINOUS
     Route: 048
     Dates: start: 20130121
  14. DIPYRONE [Concomitant]
     Indication: PAIN
     Route: 048

REACTIONS (7)
  - Disease complication [Fatal]
  - Drug ineffective [Fatal]
  - Renal disorder [Not Recovered/Not Resolved]
  - Liver disorder [Not Recovered/Not Resolved]
  - Vomiting [Not Recovered/Not Resolved]
  - Chest pain [Not Recovered/Not Resolved]
  - Arthralgia [Not Recovered/Not Resolved]
